FAERS Safety Report 25615206 (Version 1)
Quarter: 2025Q3

REPORT INFORMATION
  Report Type: Spontaneous
  Country: EU (occurrence: EU)
  Receive Date: 20250729
  Receipt Date: 20250729
  Transmission Date: 20251020
  Serious: Yes (Hospitalization)
  Sender: NOVO NORDISK
  Company Number: None

PATIENT
  Age: 14 Year
  Sex: Female

DRUGS (1)
  1. RYBELSUS [Suspect]
     Active Substance: SEMAGLUTIDE
     Indication: Product used for unknown indication

REACTIONS (7)
  - Hot flush [Unknown]
  - General symptom [Unknown]
  - Hepatobiliary disease [Unknown]
  - Malaise [Unknown]
  - Liver disorder [Unknown]
  - Decreased appetite [Unknown]
  - Accidental exposure to product by child [Unknown]
